FAERS Safety Report 8235396-6 (Version None)
Quarter: 2012Q1

REPORT INFORMATION
  Report Type: 
  Country: None (occurrence: None)
  Receive Date: 20120326
  Receipt Date: 20120323
  Transmission Date: 20120608
  Serious: Yes (Other)
  Sender: FDA-Public Use
  Company Number: US-PFIZER INC-2012033991

PATIENT
  Sex: Female
  Weight: 54.422 kg

DRUGS (3)
  1. CHANTIX [Suspect]
     Indication: SMOKING CESSATION THERAPY
     Dosage: 0.5 MG, DAILY
     Route: 048
     Dates: start: 20120204, end: 20120206
  2. OXYCODONE [Concomitant]
     Dosage: 15 MG, 4X/DAY
  3. CHANTIX [Suspect]
     Dosage: 0.5 MG, 2X/DAY
     Route: 048
     Dates: start: 20120207

REACTIONS (3)
  - VOMITING [None]
  - CONVULSION [None]
  - NAUSEA [None]
